FAERS Safety Report 23835094 (Version 3)
Quarter: 2024Q4

REPORT INFORMATION
  Report Type: Spontaneous
  Country: JP (occurrence: JP)
  Receive Date: 20240509
  Receipt Date: 20241021
  Transmission Date: 20250115
  Serious: Yes (Hospitalization, Other)
  Sender: GENMAB
  Company Number: JP-GENMAB-2024-01478

PATIENT
  Age: 68 Year
  Sex: Male
  Weight: 75 kg

DRUGS (8)
  1. EPKINLY [Suspect]
     Active Substance: EPCORITAMAB-BYSP
     Indication: Follicular lymphoma
     Dosage: 0.16 MILLIGRAM, SINGLE
     Route: 058
     Dates: start: 20240417, end: 20240417
  2. EPKINLY [Suspect]
     Active Substance: EPCORITAMAB-BYSP
     Dosage: 0.8 MILLIGRAM, SINGLE
     Route: 058
     Dates: start: 20240424, end: 20240424
  3. EPKINLY [Suspect]
     Active Substance: EPCORITAMAB-BYSP
     Dosage: 48 MILLIGRAM
     Route: 058
     Dates: start: 20240501, end: 20240501
  4. EPKINLY [Suspect]
     Active Substance: EPCORITAMAB-BYSP
     Dosage: 48 MILLIGRAM
     Route: 058
     Dates: start: 2024, end: 20240625
  5. EPKINLY [Suspect]
     Active Substance: EPCORITAMAB-BYSP
     Dosage: 48 MILLIGRAM, EPKINLY WAS WITHDRAWN AT CYCLE 4.
     Route: 058
     Dates: start: 20240723, end: 20240730
  6. PREDONINE [Concomitant]
     Active Substance: PREDNISOLONE
     Indication: Prophylaxis
     Dosage: 100 MILLIGRAM, DAY 1, DAY 2, DAY 3 AND DAY 4 OF ADMINISTRATION OF EPKINLY
     Dates: start: 20240417, end: 20240504
  7. FEXOFENADINE HYDROCHLORIDE [Concomitant]
     Active Substance: FEXOFENADINE HYDROCHLORIDE
     Indication: Prophylaxis
     Dosage: 60 MILLIGRAM, DAY 1 OF ADMINISTRATION OF EPKINLY
     Dates: start: 20240417, end: 20240501
  8. CALONAL [Concomitant]
     Active Substance: ACETAMINOPHEN
     Indication: Prophylaxis
     Dosage: 1000 MILLIGRAM, DAY 1 OF ADMINISTRATION OF EPKINLY
     Dates: start: 20240417, end: 20240501

REACTIONS (7)
  - Follicular lymphoma [Unknown]
  - Cytokine release syndrome [Recovered/Resolved with Sequelae]
  - C-reactive protein increased [Recovered/Resolved]
  - Cytomegalovirus test positive [Recovered/Resolved]
  - COVID-19 [Unknown]
  - Infection [Unknown]
  - Pyrexia [Recovered/Resolved]

NARRATIVE: CASE EVENT DATE: 20240101
